FAERS Safety Report 5980181-9 (Version None)
Quarter: 2008Q4

REPORT INFORMATION
  Report Type: 
  Country: None (occurrence: None)
  Receive Date: 20081202
  Receipt Date: 20081202
  Transmission Date: 20090506
  Serious: Yes (Disabling, Other)
  Sender: FDA-Public Use
  Company Number: None

PATIENT
  Age: 29 Year
  Sex: Female
  Weight: 54.4316 kg

DRUGS (3)
  1. SOMA [Suspect]
     Indication: BACK PAIN
     Dosage: 250MG 3 PO
     Route: 048
     Dates: start: 20081126, end: 20081130
  2. SOMA [Suspect]
     Indication: INSOMNIA
     Dosage: 250MG 3 PO
     Route: 048
     Dates: start: 20081126, end: 20081130
  3. SOMA [Suspect]
     Indication: MYALGIA
     Dosage: 250MG 3 PO
     Route: 048
     Dates: start: 20081126, end: 20081130

REACTIONS (11)
  - ABNORMAL BEHAVIOUR [None]
  - AMNESIA [None]
  - BALANCE DISORDER [None]
  - CONTUSION [None]
  - DRUG SCREEN POSITIVE [None]
  - FALL [None]
  - IMPRISONMENT [None]
  - INSOMNIA [None]
  - INTENTIONAL SELF-INJURY [None]
  - PANIC ATTACK [None]
  - TREMOR [None]
